FAERS Safety Report 24035220 (Version 1)
Quarter: 2024Q2

REPORT INFORMATION
  Report Type: Spontaneous
  Country: US (occurrence: None)
  Receive Date: 20240629
  Receipt Date: 20240629
  Transmission Date: 20240716
  Serious: Yes (Hospitalization, Other)
  Sender: FDA-Public Use
  Company Number: None

PATIENT
  Age: 29 Year
  Sex: Male
  Weight: 91.35 kg

DRUGS (2)
  1. DOXAZOSIN [Suspect]
     Active Substance: DOXAZOSIN MESYLATE
     Indication: Hypertension
     Dosage: OTHER QUANTITY : 30 TABLET(S);?FREQUENCY : DAILY;?
     Route: 048
     Dates: start: 20240604, end: 20240614
  2. DOXAZOSIN [Suspect]
     Active Substance: DOXAZOSIN MESYLATE
     Indication: Post-traumatic stress disorder

REACTIONS (10)
  - Syncope [None]
  - Head injury [None]
  - Cerebral haemorrhage [None]
  - Lower limb fracture [None]
  - Hip fracture [None]
  - Vision blurred [None]
  - Mouth haemorrhage [None]
  - Lip injury [None]
  - Muscle spasms [None]
  - Seizure [None]

NARRATIVE: CASE EVENT DATE: 20240604
